FAERS Safety Report 6542655-1 (Version None)
Quarter: 2010Q1

REPORT INFORMATION
  Report Type: 
  Country: None (occurrence: None)
  Receive Date: 20100114
  Receipt Date: 20100111
  Transmission Date: 20100710
  Serious: Yes (Other)
  Sender: FDA-Public Use
  Company Number: 231733J09USA

PATIENT
  Age: 41 Year
  Sex: Female
  Weight: 72 kg

DRUGS (5)
  1. REBIF [Suspect]
     Indication: MULTIPLE SCLEROSIS
     Dosage: 44 MCG, 1 IN 3 WEEKS, SUBCUTANEOUS
     Route: 058
     Dates: start: 20051128
  2. IRON (IRON) [Concomitant]
  3. ASCORBIC ACID [Concomitant]
  4. EFFEXOR [Concomitant]
  5. UNSPECIFIED MEDICATION (ALL OTHER THERAPEUTIC PRODUCTS) [Concomitant]

REACTIONS (2)
  - EPILEPSY [None]
  - GRAND MAL CONVULSION [None]
